FAERS Safety Report 10660102 (Version 1)
Quarter: 2014Q4

REPORT INFORMATION
  Report Type: Spontaneous
  Country: US (occurrence: US)
  Receive Date: 20141217
  Receipt Date: 20141217
  Transmission Date: 20150529
  Serious: Yes (Death, Hospitalization, Other)
  Sender: FDA-Public Use
  Company Number: US-SA-2014SA017915

PATIENT

DRUGS (3)
  1. TAXOTERE [Suspect]
     Active Substance: DOCETAXEL
     Indication: BREAST CANCER
     Route: 042
  2. TAXOTERE [Suspect]
     Active Substance: DOCETAXEL
     Indication: BREAST CANCER
     Route: 042
     Dates: start: 20130923
  3. TAXOTERE [Suspect]
     Active Substance: DOCETAXEL
     Indication: BREAST CANCER
     Route: 042
     Dates: start: 20131014

REACTIONS (8)
  - Pneumonia [Unknown]
  - Dyspnoea [Unknown]
  - Hypotension [Unknown]
  - Nausea [Unknown]
  - Pleural effusion [Unknown]
  - Gastrointestinal haemorrhage [Unknown]
  - Neutropenic infection [Fatal]
  - Rectal haemorrhage [Unknown]

NARRATIVE: CASE EVENT DATE: 20131022
